FAERS Safety Report 6212272-1 (Version None)
Quarter: 2009Q2

REPORT INFORMATION
  Report Type: 
  Country: None (occurrence: None)
  Receive Date: 20090529
  Receipt Date: 20090518
  Transmission Date: 20091009
  Serious: Yes (Other)
  Sender: FDA-Public Use
  Company Number: ADE#  09-229DPR

PATIENT
  Age: 75 Year
  Sex: Female

DRUGS (14)
  1. DIGOXIN [Suspect]
     Indication: HEART RATE IRREGULAR
     Dosage: ONE A DAY FOR MANY YEARS
  2. PLAVIX [Concomitant]
  3. POTASSIUM CHLORIDE [Concomitant]
     Dosage: 10MEQ
  4. ENALAPRIL [Concomitant]
  5. ISOSORBIDE MONONITRATE [Concomitant]
  6. GLYBURIDE [Concomitant]
  7. FUROSEMIDE [Concomitant]
  8. LYRICA [Concomitant]
  9. NITRO-DUR [Concomitant]
  10. ASPIRIN [Concomitant]
  11. METOPROLOL SUCCINATE [Concomitant]
  12. LYNESTA [Concomitant]
  13. DARVOCET [Concomitant]
  14. METFORMIN [Concomitant]

REACTIONS (1)
  - MYOCARDIAL INFARCTION [None]
